FAERS Safety Report 6884423-7 (Version None)
Quarter: 2010Q3

REPORT INFORMATION
  Report Type: 
  Country: None (occurrence: None)
  Receive Date: 20100729
  Receipt Date: 20070419
  Transmission Date: 20110219
  Serious: Yes (Hospitalization, Other)
  Sender: FDA-Public Use
  Company Number: US-PFIZER INC-2007058142

PATIENT
  Sex: Male
  Weight: 107.5 kg

DRUGS (6)
  1. CELEBREX [Suspect]
     Indication: INFLAMMATION
     Route: 048
     Dates: start: 19990101
  2. CELEBREX [Suspect]
     Indication: PAIN MANAGEMENT
  3. CELEBREX [Suspect]
     Indication: ARTHRITIS
  4. ACETYLSALICYLIC ACID SRT [Concomitant]
  5. ACETAMINOPHEN [Concomitant]
  6. MORPHINE [Concomitant]

REACTIONS (1)
  - MYOCARDIAL INFARCTION [None]
